FAERS Safety Report 4772695-4 (Version None)
Quarter: 2005Q3

REPORT INFORMATION
  Report Type: 
  Country: None (occurrence: None)
  Receive Date: 20050919
  Receipt Date: 20041122
  Transmission Date: 20060218
  Serious: Yes (Other)
  Sender: FDA-Public Use
  Company Number: 200413737JP

PATIENT
  Age: 41 Year
  Sex: Male
  Weight: 63.1 kg

DRUGS (4)
  1. LANTUS [Suspect]
     Indication: DIABETES MELLITUS INSULIN-DEPENDENT
     Route: 058
     Dates: start: 20040326, end: 20041116
  2. OPTIPEN (INSULIN PUMP) [Suspect]
     Indication: DIABETES MELLITUS INSULIN-DEPENDENT
  3. HUMALOG [Concomitant]
     Indication: DIABETES MELLITUS INSULIN-DEPENDENT
     Dosage: DOSE: 12-14
     Route: 058
     Dates: start: 20040326
  4. RENIVACE [Concomitant]
     Indication: HYPERTENSION
     Dosage: DOSE UNIT: UNITS
     Route: 048
     Dates: start: 19950723

REACTIONS (1)
  - DIABETIC RETINOPATHY [None]
